FAERS Safety Report 8541527-0 (Version None)
Quarter: 2012Q3

REPORT INFORMATION
  Report Type: 
  Country: None (occurrence: None)
  Receive Date: 20120726
  Receipt Date: 20110921
  Transmission Date: 20120928
  Serious: No
  Sender: FDA-Public Use
  Company Number: US-ASTRAZENECA-2011SE56890

PATIENT
  Age: 35 Year
  Sex: Male
  Weight: 93 kg

DRUGS (4)
  1. SEROQUEL XR [Suspect]
     Indication: DEPRESSION
     Route: 048
     Dates: start: 20110711, end: 20110810
  2. ZYRTEC [Concomitant]
     Indication: ALLERGY PROPHYLAXIS
  3. CELEXA [Concomitant]
     Indication: ANTIDEPRESSANT THERAPY
  4. PROPRANOLOL [Concomitant]
     Indication: HYPERTENSION

REACTIONS (4)
  - INFLUENZA LIKE ILLNESS [None]
  - DRUG DOSE OMISSION [None]
  - MALAISE [None]
  - DIARRHOEA [None]
